FAERS Safety Report 9916652 (Version 1)
Quarter: 2014Q1

REPORT INFORMATION
  Report Type: Spontaneous
  Country: US (occurrence: US)
  Receive Date: 20140221
  Receipt Date: 20140221
  Transmission Date: 20141002
  Serious: No
  Sender: FDA-Public Use
  Company Number: US-PFIZER INC-2014050154

PATIENT
  Sex: Female

DRUGS (3)
  1. NEURONTIN [Suspect]
     Indication: MOVEMENT DISORDER
     Dosage: UNK
  2. NEURONTIN [Suspect]
     Indication: FIBROMYALGIA
  3. NEURONTIN [Suspect]
     Indication: NEUROPATHY PERIPHERAL

REACTIONS (1)
  - Somnolence [Unknown]
